FAERS Safety Report 16474040 (Version 2)
Quarter: 2019Q3

REPORT INFORMATION
  Report Type: Report from Study
  Country: JP (occurrence: JP)
  Receive Date: 20190625
  Receipt Date: 20190805
  Transmission Date: 20191004
  Serious: Yes (Hospitalization, Other)
  Sender: FDA-Public Use
  Company Number: JP-BRISTOL-MYERS SQUIBB COMPANY-BMS-2019-047910

PATIENT
  Age: 69 Year
  Sex: Female
  Weight: 39 kg

DRUGS (1)
  1. NIVOLUMAB [Suspect]
     Active Substance: NIVOLUMAB
     Indication: GASTRIC CANCER
     Dosage: 240 MG (2018/10/3, 11/20, 12/4, 12/26, 2019/1/9, 1/23, 2/6, 2/20, 3/6, 3/20)
     Route: 041
     Dates: start: 20181003, end: 20190320

REACTIONS (4)
  - Cholangitis [Recovered/Resolved]
  - Blood alkaline phosphatase increased [Recovered/Resolved]
  - Large intestinal stenosis [Recovered/Resolved]
  - Pyrexia [Recovered/Resolved]

NARRATIVE: CASE EVENT DATE: 20181017
